FAERS Safety Report 7637054-5 (Version None)
Quarter: 2011Q3

REPORT INFORMATION
  Report Type: 
  Country: None (occurrence: None)
  Receive Date: 20110722
  Receipt Date: 20110722
  Transmission Date: 20111222
  Serious: Yes (Other)
  Sender: FDA-Public Use
  Company Number: None

PATIENT
  Sex: Male
  Weight: 134.2647 kg

DRUGS (2)
  1. DOXEPIN HCL [Suspect]
     Indication: MIDDLE INSOMNIA
     Dosage: 2 PILLS - 20 MG 1 X DAY - 10:00 PM ORAL
     Route: 048
     Dates: start: 20110701
  2. DOXEPIN HCL [Suspect]
     Indication: MIDDLE INSOMNIA
     Dosage: 2 PILLS - 20 MG 1 X DAY - 10:00 PM ORAL
     Route: 048
     Dates: start: 20110620

REACTIONS (2)
  - BLOOD GLUCOSE INCREASED [None]
  - CRANIOCEREBRAL INJURY [None]
